FAERS Safety Report 24207737 (Version 1)
Quarter: 2024Q3

REPORT INFORMATION
  Report Type: Spontaneous
  Country: CA (occurrence: CA)
  Receive Date: 20240814
  Receipt Date: 20240814
  Transmission Date: 20241016
  Serious: Yes (Other)
  Sender: CELLTRION
  Company Number: CA-CELLTRION INC.-2024CA018987

PATIENT

DRUGS (15)
  1. YUFLYMA [Suspect]
     Active Substance: ADALIMUMAB-AATY
     Indication: Hidradenitis
  2. AKLIEF [Concomitant]
     Active Substance: TRIFAROTENE
     Dosage: UNK
     Dates: start: 20231130
  3. CALCIUM [Concomitant]
     Active Substance: CALCIUM
     Dosage: UNK
     Dates: start: 202305
  4. CLINDAMYCIN [Concomitant]
     Active Substance: CLINDAMYCIN
     Dosage: UNK
     Dates: start: 20240618
  5. CURCUMIN [Concomitant]
     Active Substance: CURCUMIN
     Dosage: UNK
     Dates: start: 202305
  6. EPURIS [Concomitant]
     Active Substance: ISOTRETINOIN
     Dosage: UNK
     Dates: start: 20231129
  7. FLUTICASONE [Concomitant]
     Active Substance: FLUTICASONE
     Dosage: UNK
     Dates: start: 202302
  8. KETOCONAZOLE [Concomitant]
     Active Substance: KETOCONAZOLE
     Dosage: UNK
     Dates: start: 20231203
  9. MAGNESIUM [Concomitant]
     Active Substance: MAGNESIUM
     Dosage: UNK
     Dates: start: 202305
  10. MOXIFLOXACIN [Concomitant]
     Active Substance: MOXIFLOXACIN
     Dosage: UNK
     Dates: start: 20240112
  11. VITAMINS [Concomitant]
     Active Substance: VITAMINS
     Dosage: UNK
     Dates: start: 202305
  12. OMEGA-3 FATTY ACIDS [Concomitant]
     Active Substance: OMEGA-3 FATTY ACIDS
     Dosage: UNK
     Dates: start: 202305
  13. PANTOPRAZOLE [Concomitant]
     Active Substance: PANTOPRAZOLE
     Dosage: UNK
     Dates: start: 202311
  14. RIFAMPIN [Concomitant]
     Active Substance: RIFAMPIN
     Dosage: UNK
     Dates: start: 20240618
  15. TAZAROTENE [Concomitant]
     Active Substance: TAZAROTENE
     Dosage: UNK
     Dates: start: 202302

REACTIONS (2)
  - Sweat gland excision [Recovered/Resolved]
  - Drug ineffective [Recovered/Resolved]

NARRATIVE: CASE EVENT DATE: 20240801
